FAERS Safety Report 25032832 (Version 1)
Quarter: 2025Q1

REPORT INFORMATION
  Report Type: Spontaneous
  Country: US (occurrence: None)
  Receive Date: 20250228
  Receipt Date: 20250228
  Transmission Date: 20250409
  Serious: No
  Sender: FDA-CTU
  Company Number: None

PATIENT

DRUGS (2)
  1. PROPOFOL [Suspect]
     Active Substance: PROPOFOL
  2. NOREPINEPHRINE [Suspect]
     Active Substance: NOREPINEPHRINE

REACTIONS (3)
  - Incorrect drug administration rate [None]
  - Blood pressure decreased [None]
  - Pupillary reflex impaired [None]
